FAERS Safety Report 22271080 (Version 1)
Quarter: 2023Q2

REPORT INFORMATION
  Report Type: Spontaneous
  Country: US (occurrence: None)
  Receive Date: 20230428
  Receipt Date: 20230428
  Transmission Date: 20230721
  Serious: No
  Sender: FDA-Public Use
  Company Number: None

PATIENT
  Sex: Female

DRUGS (1)
  1. SUNITINIB MALATE [Suspect]
     Active Substance: SUNITINIB MALATE
     Indication: Meningioma benign
     Dosage: 1 C QD PO28DON14DOFF?
     Route: 048

REACTIONS (2)
  - Therapy interrupted [None]
  - Thrombocytopenia [None]
